FAERS Safety Report 8192633-4 (Version None)
Quarter: 2012Q1

REPORT INFORMATION
  Report Type: 
  Country: None (occurrence: None)
  Receive Date: 20120221
  Receipt Date: 20120109
  Transmission Date: 20120608
  Serious: No
  Sender: FDA-Public Use
  Company Number: 1000026864

PATIENT
  Age: 37 Year
  Sex: Female

DRUGS (10)
  1. VIIBRYD [Suspect]
     Indication: ANXIETY
     Dosage: 10 MG (10 MG,1 IN 1 D),ORAL  20 MG (20 MG, 1 IN 1 D),ORAL
     Route: 048
     Dates: start: 20111201, end: 20111201
  2. VIIBRYD [Suspect]
     Indication: DEPRESSION
     Dosage: 10 MG (10 MG,1 IN 1 D),ORAL  20 MG (20 MG, 1 IN 1 D),ORAL
     Route: 048
     Dates: start: 20111201, end: 20111201
  3. RISPERDAL(RISPERIDONE)(3 MILLIGRAM, TABLETS)(RISPERIDONE) [Concomitant]
  4. WELLBUTRIN(BUPROPION HYDROCHLORIDE)(BUPROPION HYDROCHLORIDE) [Concomitant]
  5. VIIBRYD [Suspect]
     Indication: DEPRESSION
     Dosage: 40 MG (40 MG,1 IN 1 D),ORAL
     Route: 048
     Dates: start: 20111201, end: 20111201
  6. VIIBRYD [Suspect]
     Indication: ANXIETY
     Dosage: 40 MG (40 MG,1 IN 1 D),ORAL
     Route: 048
     Dates: start: 20111201, end: 20111201
  7. NEURONTIN(GABAPENTIN)(600 MILLIGRAM, TABLETS)(GABAPENTIN) [Concomitant]
  8. KLONOPIN [Concomitant]
  9. LEVOTHYROXINE(LEVOTHYROXINE SODIUM)(LEVOTHYROXINE SODIUM) [Concomitant]
  10. HYDROCODONE(HYDROCODONE) (HYDROCODONE) [Concomitant]

REACTIONS (2)
  - NAUSEA [None]
  - VOMITING [None]
